FAERS Safety Report 9214360 (Version 2)
Quarter: 2013Q2

REPORT INFORMATION
  Report Type: Spontaneous
  Country: FR (occurrence: FR)
  Receive Date: 20130405
  Receipt Date: 20130422
  Transmission Date: 20140414
  Serious: Yes (Hospitalization, Other)
  Sender: FDA-Public Use
  Company Number: FR-JNJFOC-20130317839

PATIENT
  Age: 78 Year
  Sex: Male

DRUGS (4)
  1. XARELTO [Suspect]
     Indication: ATRIAL FIBRILLATION
     Route: 048
     Dates: start: 20121127, end: 20130315
  2. XARELTO [Suspect]
     Indication: CEREBROVASCULAR ACCIDENT PROPHYLAXIS
     Route: 048
     Dates: start: 20121127, end: 20130315
  3. KERLONE [Concomitant]
     Route: 065
     Dates: end: 201303
  4. CORDARONE [Concomitant]
     Route: 065

REACTIONS (3)
  - Ischaemic stroke [Recovering/Resolving]
  - Renal failure [Recovering/Resolving]
  - Drug ineffective [Unknown]
